FAERS Safety Report 15350600 (Version 1)
Quarter: 2018Q3

REPORT INFORMATION
  Report Type: Spontaneous
  Country: GB (occurrence: GB)
  Receive Date: 20180905
  Receipt Date: 20180905
  Transmission Date: 20181010
  Serious: Yes (Death)
  Sender: FDA-Public Use
  Company Number: GB-TEVA-2018-GB-951553

PATIENT
  Age: 57 Year
  Sex: Male
  Weight: 76.5 kg

DRUGS (13)
  1. SIMVASTATIN. [Concomitant]
     Active Substance: SIMVASTATIN
     Route: 065
  2. GLYCERYL TRINITRATE [Concomitant]
     Active Substance: NITROGLYCERIN
     Route: 065
  3. EPLERENONE. [Concomitant]
     Active Substance: EPLERENONE
     Route: 065
  4. GAVISCON [Concomitant]
     Active Substance: ALUMINUM HYDROXIDE\MAGNESIUM CARBONATE
     Route: 065
  5. ACETYLSALICYLIC ACID [Concomitant]
     Active Substance: ASPIRIN
     Route: 065
  6. METOCLOPRAMIDE. [Concomitant]
     Active Substance: METOCLOPRAMIDE
     Route: 065
  7. PARACETAMOL [Concomitant]
     Active Substance: ACETAMINOPHEN
     Route: 065
  8. DEXAMETHASONE. [Concomitant]
     Active Substance: DEXAMETHASONE
     Route: 065
  9. LANSOPRAZOLE. [Concomitant]
     Active Substance: LANSOPRAZOLE
     Route: 065
  10. BISOPROLOL [Concomitant]
     Active Substance: BISOPROLOL
     Route: 065
  11. DOCETAXEL. [Suspect]
     Active Substance: DOCETAXEL
     Indication: NON-SMALL CELL LUNG CANCER STAGE IV
     Dosage: 140 MILLIGRAM
     Route: 042
     Dates: start: 20180710, end: 20180710
  12. ONDANSETRON [Concomitant]
     Active Substance: ONDANSETRON
     Route: 065
  13. LEVOTHYROXINE. [Concomitant]
     Active Substance: LEVOTHYROXINE
     Route: 065

REACTIONS (2)
  - Pneumonitis [Fatal]
  - Dyspnoea [Fatal]

NARRATIVE: CASE EVENT DATE: 20180725
